FAERS Safety Report 5034873-9 (Version None)
Quarter: 2006Q2

REPORT INFORMATION
  Report Type: 
  Country: None (occurrence: None)
  Receive Date: 20060627
  Receipt Date: 20060301
  Transmission Date: 20061013
  Serious: Yes (Life-Threatening)
  Sender: FDA-Public Use
  Company Number: GBWYE445903MAR06

PATIENT
  Sex: Male
  Weight: 69.5 kg

DRUGS (9)
  1. ENBREL [Suspect]
     Indication: RHEUMATOID ARTHRITIS
     Dosage: UNKNOWN
     Route: 058
  2. ENBREL [Suspect]
     Route: 058
  3. PREDNISOLONE [Concomitant]
  4. ATENOLOL [Concomitant]
  5. ATORVASTATIN CALCIUM [Concomitant]
  6. METFORMIN [Concomitant]
     Dosage: UNKNOWN DOSE, ONCE DAILY
  7. OMEPRAZOLE [Concomitant]
  8. DICLOFENAC [Concomitant]
     Dosage: UNKNOWN
  9. GLICLAZIDE [Concomitant]

REACTIONS (2)
  - ACUTE MYOCARDIAL INFARCTION [None]
  - MYOCARDIAL INFARCTION [None]
